FAERS Safety Report 4314836-9 (Version None)
Quarter: 2004Q1

REPORT INFORMATION
  Report Type: 
  Country: None (occurrence: None)
  Receive Date: 20040308
  Receipt Date: 20040204
  Transmission Date: 20041129
  Serious: Yes (Other)
  Sender: FDA-Public Use
  Company Number: 2004007646

PATIENT
  Age: 44 Year
  Sex: Male

DRUGS (8)
  1. VIAGRA [Suspect]
     Indication: PULMONARY HYPERTENSION
     Dosage: 200 MG (QID) UNKNOWN
     Route: 065
  2. TACROLIMUS (TACROLIMUS) [Concomitant]
  3. NIFEDIPINE [Concomitant]
  4. AZATHIOPRINE [Concomitant]
  5. PREDNISONE [Concomitant]
  6. WARFARIN SODIUM [Concomitant]
  7. PENICILLIN [Concomitant]
  8. OXYGEN (OXYGEN) [Concomitant]

REACTIONS (5)
  - ANISOCYTOSIS [None]
  - LABORATORY TEST ABNORMAL [None]
  - PLATELET DISORDER [None]
  - POLYCHROMASIA [None]
  - RED BLOOD CELL MORPHOLOGY ABNORMAL [None]
